FAERS Safety Report 5827946-1 (Version None)
Quarter: 2008Q3

REPORT INFORMATION
  Report Type: 
  Country: None (occurrence: None)
  Receive Date: 20080730
  Receipt Date: 20080718
  Transmission Date: 20090109
  Serious: Yes (Other)
  Sender: FDA-Public Use
  Company Number: GB-PFIZER INC-2008060867

PATIENT
  Sex: Male

DRUGS (2)
  1. VIBRAMYCIN [Suspect]
  2. DRUG, UNSPECIFIED [Concomitant]

REACTIONS (1)
  - POLYMYOSITIS [None]
